FAERS Safety Report 10003386 (Version 3)
Quarter: 2015Q3

REPORT INFORMATION
  Report Type: Spontaneous
  Country: US (occurrence: US)
  Receive Date: 20140312
  Receipt Date: 20150812
  Transmission Date: 20151125
  Serious: Yes (Hospitalization)
  Sender: FDA-Public Use
  Company Number: US-GILEAD-2012-0062139

PATIENT
  Age: 72 Year
  Sex: Female

DRUGS (2)
  1. LETAIRIS [Suspect]
     Active Substance: AMBRISENTAN
     Dates: start: 20120920, end: 20121006
  2. LETAIRIS [Suspect]
     Active Substance: AMBRISENTAN
     Indication: PULMONARY ARTERIAL HYPERTENSION
     Dosage: 5 MG, QD
     Route: 048
     Dates: start: 20120917, end: 20121006

REACTIONS (2)
  - Fluid retention [Recovered/Resolved]
  - Haemoglobin decreased [Unknown]

NARRATIVE: CASE EVENT DATE: 20120923
